FAERS Safety Report 12521704 (Version 5)
Quarter: 2016Q4

REPORT INFORMATION
  Report Type: Other
  Country: US (occurrence: US)
  Receive Date: 20160701
  Receipt Date: 20161020
  Transmission Date: 20170207
  Serious: Yes (Hospitalization, Other)
  Sender: FDA-Public Use
  Company Number: US-ACORDA-ACO_125475_2016

PATIENT
  Age: 49 Year
  Sex: Male

DRUGS (3)
  1. AMPYRA [Suspect]
     Active Substance: DALFAMPRIDINE
     Dosage: 10 MG, BID
     Route: 048
     Dates: start: 2016
  2. AMPYRA [Suspect]
     Active Substance: DALFAMPRIDINE
     Indication: MULTIPLE SCLEROSIS
     Dosage: 10 MG, BID
     Route: 048
     Dates: start: 20140605
  3. AMPYRA [Suspect]
     Active Substance: DALFAMPRIDINE
     Dosage: UNK
     Route: 065
     Dates: start: 201503, end: 2016

REACTIONS (13)
  - Gastroenteritis viral [Unknown]
  - Inappropriate schedule of drug administration [Unknown]
  - Muscle disorder [Unknown]
  - Condition aggravated [Unknown]
  - Cardiac arrest [Unknown]
  - Abasia [Unknown]
  - Balance disorder [Unknown]
  - Gait disturbance [Unknown]
  - Nasopharyngitis [Unknown]
  - Feeling hot [Unknown]
  - Depressed mood [Unknown]
  - Drug ineffective [Unknown]
  - Muscle tightness [Unknown]

NARRATIVE: CASE EVENT DATE: 20160611
